FAERS Safety Report 8292300-2 (Version None)
Quarter: 2012Q2

REPORT INFORMATION
  Report Type: 
  Country: None (occurrence: None)
  Receive Date: 20120417
  Receipt Date: 20120403
  Transmission Date: 20120825
  Serious: Yes (Other)
  Sender: FDA-Public Use
  Company Number: PHHY2012ES030350

PATIENT
  Age: 48 Year
  Sex: Male
  Weight: 90 kg

DRUGS (20)
  1. HIBOR [Interacting]
     Dosage: 1 DF, QD
     Route: 058
     Dates: start: 20110907, end: 20110930
  2. POLARAMINE [Interacting]
     Dosage: 12 MEQ, UNK
     Route: 048
     Dates: start: 20110916, end: 20110922
  3. VESANOID [Interacting]
     Indication: ACUTE PROMYELOCYTIC LEUKAEMIA
     Dosage: 50 MG, BID
     Route: 048
     Dates: start: 20110826, end: 20111007
  4. AMBISOME [Interacting]
     Dosage: 250 MG, UNK
     Route: 042
     Dates: start: 20110916, end: 20110926
  5. OMEPRAZOLE [Interacting]
     Dosage: 20 MEQ, UNK
     Route: 048
     Dates: start: 20110825, end: 20111007
  6. TAZOBACTAM [Interacting]
     Dosage: 1 G, QID
     Route: 042
     Dates: start: 20110914, end: 20110919
  7. NOXAFIL [Interacting]
     Dosage: 40 MG/ML 150 ML
     Route: 048
     Dates: start: 20110902, end: 20110917
  8. FUROSEMIDE [Interacting]
     Dosage: 20 MG, UNK
     Route: 042
     Dates: start: 20110908, end: 20110926
  9. ENOXAPARIN SODIUM [Interacting]
     Dosage: 20 MG, UNK
     Route: 058
     Dates: start: 20110825, end: 20110826
  10. ALLOPURINOL [Interacting]
     Dosage: 300 MG, UNK
     Route: 048
     Dates: start: 20110825, end: 20110908
  11. CUBICIN [Interacting]
     Dosage: 350 MG, QD
     Route: 042
     Dates: start: 20110910, end: 20110914
  12. ACETAMINOPHEN [Interacting]
     Dosage: 1 G, TID
     Route: 042
     Dates: start: 20110825, end: 20110908
  13. ORBENIN CAP [Interacting]
     Dosage: 1000 MG, QID
     Route: 048
     Dates: start: 20110831, end: 20110916
  14. TARGOCID [Interacting]
     Dosage: 400 MG, UNK
     Route: 042
     Dates: start: 20110906, end: 20110919
  15. ACYCLOVIR [Interacting]
     Dosage: 500 MG, TID
     Route: 042
     Dates: start: 20110911, end: 20110913
  16. MAXIPIME [Interacting]
     Dosage: 1 G, TID
     Route: 042
     Dates: start: 20110825, end: 20110903
  17. MEROPENEM [Interacting]
     Dosage: 1 G, TID
     Route: 042
     Dates: start: 20110905, end: 20110914
  18. DUPHALAC [Interacting]
     Dosage: 10 G, UNK
     Route: 048
     Dates: start: 20110831, end: 20110914
  19. UROKINASE [Interacting]
     Dosage: 100 IU/KG, UNK
     Dates: start: 20110915, end: 20110915
  20. LEVOFLOXACIN [Suspect]
     Dosage: 500 MG, UNK
     Route: 048
     Dates: start: 20110918, end: 20110928

REACTIONS (2)
  - MYOSITIS [None]
  - DRUG INTERACTION [None]
